FAERS Safety Report 8263695-0 (Version None)
Quarter: 2012Q2

REPORT INFORMATION
  Report Type: 
  Country: None (occurrence: None)
  Receive Date: 20120405
  Receipt Date: 20120403
  Transmission Date: 20120825
  Serious: No
  Sender: FDA-Public Use
  Company Number: US-BAYER-2012-033454

PATIENT
  Age: 84 Year
  Sex: Female
  Weight: 77 kg

DRUGS (2)
  1. ALEVE (CAPLET) [Suspect]
     Indication: ARTHRITIS
     Dosage: 1 TAB ONCE DAILY
     Route: 048
     Dates: start: 20120320
  2. ANTIHYPERTENSIVES [Concomitant]
     Indication: HYPERTENSION

REACTIONS (2)
  - NO ADVERSE EVENT [None]
  - CONSTIPATION [None]
